FAERS Safety Report 6154275-1 (Version None)
Quarter: 2009Q2

REPORT INFORMATION
  Report Type: 
  Country: None (occurrence: None)
  Receive Date: 20090410
  Receipt Date: 20090330
  Transmission Date: 20091009
  Serious: Yes (Death, Life-Threatening, Hospitalization, Other)
  Sender: FDA-Public Use
  Company Number: 2007-02493

PATIENT
  Age: 56 Year
  Sex: Female
  Weight: 50 kg

DRUGS (23)
  1. VELCADE [Suspect]
     Indication: MULTIPLE MYELOMA
     Dosage: 1.8 MG, INTRAVENOUS; 1 MG, INTRAVENOUS
     Route: 042
     Dates: start: 20070205, end: 20070311
  2. VELCADE [Suspect]
     Indication: MULTIPLE MYELOMA
     Dosage: 1.8 MG, INTRAVENOUS; 1 MG, INTRAVENOUS
     Route: 042
     Dates: start: 20080129, end: 20080213
  3. SULFAMETHOXAZOLE AND TRIMETHOPRIM [Suspect]
     Indication: PROPHYLAXIS
     Dosage: 1 DF, ORAL
     Route: 048
     Dates: start: 20080125, end: 20080202
  4. DEXAMETHASONE 4MG TAB [Concomitant]
  5. ITRACONAZOLE [Concomitant]
  6. FAMOTIDINE [Concomitant]
  7. VIT K CAP [Concomitant]
  8. DEPAS (ETIZOLAM) [Concomitant]
  9. MAGNESIUM OXIDE (MAGNESIUM OXIDE) [Concomitant]
  10. PURSENNID (SENNA LEAF) [Concomitant]
  11. PANTOL (DEXPANTHENOL) [Concomitant]
  12. DECADRON [Concomitant]
  13. PENTAZOCINE LACTATE [Concomitant]
  14. ATARAX [Concomitant]
  15. MINOPHAGEN C (AMINOACETIC ACID, GLYCYRRHIZIC ACID) [Concomitant]
  16. PRIMPERAN TAB [Concomitant]
  17. OMEPRAZOLE [Concomitant]
  18. FENTANYL-100 [Concomitant]
  19. VERAPAMIL HYDROCHLORIDE [Concomitant]
  20. MORPHINE [Concomitant]
  21. ETODOLAC [Concomitant]
  22. NOVAMIN (PROCHLORPERAZINE) [Concomitant]
  23. MORPHINE SULFATE INJ [Concomitant]

REACTIONS (10)
  - CONDITION AGGRAVATED [None]
  - CONSTIPATION [None]
  - DISEASE PROGRESSION [None]
  - HEPATIC FAILURE [None]
  - HYPERAMMONAEMIA [None]
  - ILEUS PARALYTIC [None]
  - LIVER DISORDER [None]
  - PAIN [None]
  - VOMITING [None]
  - WHITE BLOOD CELL COUNT DECREASED [None]
